FAERS Safety Report 9009379 (Version 1)
Quarter: 2013Q1

REPORT INFORMATION
  Report Type: Spontaneous
  Country: US (occurrence: US)
  Receive Date: 20130111
  Receipt Date: 20130111
  Transmission Date: 20140127
  Serious: Yes (Other)
  Sender: FDA-Public Use
  Company Number: PHEH2013US000787

PATIENT
  Age: 57 Year
  Sex: Female

DRUGS (2)
  1. TASIGNA [Suspect]
     Dosage: UNK
     Route: 048
  2. ZOCOR [Concomitant]

REACTIONS (2)
  - Liver function test abnormal [Not Recovered/Not Resolved]
  - Neutropenia [Not Recovered/Not Resolved]
